FAERS Safety Report 4712960-X (Version None)
Quarter: 2005Q3

REPORT INFORMATION
  Report Type: 
  Country: None (occurrence: None)
  Receive Date: 20050711
  Receipt Date: 20050624
  Transmission Date: 20060218
  Serious: Yes (Hospitalization)
  Sender: FDA-Public Use
  Company Number: FRP05000551

PATIENT
  Age: 91 Year
  Sex: Female

DRUGS (5)
  1. ACTONEL [Suspect]
     Dosage: 5 MG, DAILY,
  2. PREVISCAN (FLUINDIONE) TABLET, 20MG [Suspect]
     Dosage: 10 MG, DAILY, ORAL
     Route: 048
     Dates: start: 20030615
  3. LEVOTHYROXINE SODIUM [Suspect]
     Dosage: 75 MG, DAILY, ORAL
     Route: 048
  4. ESOMEPRAZOLE (ESOMEPRAZOLE) [Suspect]
     Dosage: 20 MG, DAILY, ORAL
     Route: 048
     Dates: end: 20050527
  5. CORTANCYL (PREDNISONE) [Suspect]
     Dosage: 5 MG, DAILY, ORAL
     Route: 048

REACTIONS (4)
  - ANAEMIA [None]
  - GASTROINTESTINAL HAEMORRHAGE [None]
  - INTERNATIONAL NORMALISED RATIO INCREASED [None]
  - RECTAL HAEMORRHAGE [None]
